FAERS Safety Report 12080397 (Version 1)
Quarter: 2016Q1

REPORT INFORMATION
  Report Type: Spontaneous
  Country: FR (occurrence: FR)
  Receive Date: 20160216
  Receipt Date: 20160216
  Transmission Date: 20160526
  Serious: Yes (Other)
  Sender: FDA-Public Use
  Company Number: FR-SA-2015SA134361

PATIENT
  Age: 56 Year
  Sex: Female

DRUGS (2)
  1. STILNOX [Suspect]
     Active Substance: ZOLPIDEM TARTRATE
     Indication: INSOMNIA
     Route: 048
     Dates: start: 20150702, end: 20150704
  2. BACLOFEN. [Interacting]
     Active Substance: BACLOFEN
     Indication: DEPENDENCE
     Route: 048

REACTIONS (1)
  - Paradoxical drug reaction [Recovered/Resolved with Sequelae]

NARRATIVE: CASE EVENT DATE: 20150704
